FAERS Safety Report 10149487 (Version 1)
Quarter: 2014Q2

REPORT INFORMATION
  Report Type: Spontaneous
  Country: CA (occurrence: CA)
  Receive Date: 20140502
  Receipt Date: 20140502
  Transmission Date: 20141212
  Serious: Yes (Other)
  Sender: FDA-Public Use
  Company Number: CA-B.I. PHARMACEUTICALS,INC./RIDGEFIELD-2014-BI-18893CN

PATIENT
  Age: 76 Year
  Sex: Female
  Weight: 55.79 kg

DRUGS (5)
  1. PRADAXA [Suspect]
     Indication: PRODUCT USED FOR UNKNOWN INDICATION
     Dosage: 220 MG
     Route: 048
  2. BISOPROLOL [Concomitant]
     Route: 065
  3. EZETROL [Concomitant]
     Route: 065
  4. LEVOTHYROXINE [Concomitant]
     Route: 065
  5. SIMVASTATIN [Concomitant]
     Route: 065

REACTIONS (3)
  - Joint swelling [Recovered/Resolved]
  - Local swelling [Recovered/Resolved]
  - Diarrhoea [Recovered/Resolved]
